FAERS Safety Report 20447116 (Version 1)
Quarter: 2022Q1

REPORT INFORMATION
  Report Type: Spontaneous
  Country: US (occurrence: US)
  Receive Date: 20220209
  Receipt Date: 20220209
  Transmission Date: 20220424
  Serious: Yes (Hospitalization, Other)
  Sender: FDA-Public Use
  Company Number: US-RISINGPHARMA-US-2022RISLIT00099

PATIENT
  Sex: Female

DRUGS (1)
  1. TESTOSTERONE CYPIONATE [Suspect]
     Active Substance: TESTOSTERONE CYPIONATE
     Indication: Transgender hormonal therapy
     Route: 065

REACTIONS (8)
  - Depression [Unknown]
  - Decreased activity [Unknown]
  - Suicidal ideation [Unknown]
  - Euphoric mood [Unknown]
  - Aggression [Unknown]
  - Anxiety [Unknown]
  - Eating disorder [Unknown]
  - Condition aggravated [Unknown]
